FAERS Safety Report 12598522 (Version 1)
Quarter: 2016Q3

REPORT INFORMATION
  Report Type: Spontaneous
  Country: US (occurrence: US)
  Receive Date: 20160727
  Receipt Date: 20160727
  Transmission Date: 20161109
  Serious: No
  Sender: FDA-Public Use
  Company Number: US-BAUSCH-BL-2016-006388

PATIENT
  Age: 91 Year
  Sex: Female

DRUGS (3)
  1. ISTALOL [Suspect]
     Active Substance: TIMOLOL MALEATE
     Dosage: IN EYES EVERY OTHER DAY IN THE MORNING
     Route: 047
     Dates: end: 201512
  2. TRAVATAN Z [Concomitant]
     Active Substance: TRAVOPROST
     Indication: PRODUCT USED FOR UNKNOWN INDICATION
     Route: 047
  3. ISTALOL [Suspect]
     Active Substance: TIMOLOL MALEATE
     Indication: OPEN ANGLE GLAUCOMA
     Route: 047
     Dates: start: 2004

REACTIONS (3)
  - Ear pain [Recovered/Resolved]
  - Toothache [Recovered/Resolved]
  - Hypersensitivity [Recovered/Resolved]

NARRATIVE: CASE EVENT DATE: 201512
